FAERS Safety Report 17271082 (Version 3)
Quarter: 2020Q1

REPORT INFORMATION
  Report Type: Spontaneous
  Country: US (occurrence: DE)
  Receive Date: 20200115
  Receipt Date: 20200212
  Transmission Date: 20200409
  Serious: Yes (Hospitalization, Disabling)
  Sender: FDA-Public Use
  Company Number: DE-BEH-2020111548

PATIENT
  Age: 71 Year
  Sex: Female

DRUGS (8)
  1. BERIPLEX P/N [Suspect]
     Active Substance: COAGULATION FACTOR IX HUMAN\COAGULATION FACTOR VII HUMAN\COAGULATION FACTOR X HUMAN\PROTEIN C\PROTEIN S HUMAN\PROTHROMBIN
     Indication: PROCOAGULANT THERAPY
     Dosage: 3000 INTERNATIONAL UNIT, SINGLE
     Route: 042
     Dates: start: 20191008, end: 20191008
  2. BERIPLEX P/N [Suspect]
     Active Substance: COAGULATION FACTOR IX HUMAN\COAGULATION FACTOR VII HUMAN\COAGULATION FACTOR X HUMAN\PROTEIN C\PROTEIN S HUMAN\PROTHROMBIN
     Indication: HAEMOSTASIS
     Dosage: 3000 INTERNATIONAL UNIT
     Route: 042
     Dates: start: 20191208, end: 20191208
  3. BERIPLEX P/N [Suspect]
     Active Substance: COAGULATION FACTOR IX HUMAN\COAGULATION FACTOR VII HUMAN\COAGULATION FACTOR X HUMAN\PROTEIN C\PROTEIN S HUMAN\PROTHROMBIN
     Indication: HAEMORRHAGE INTRACRANIAL
     Dosage: 3000 UNK
     Route: 042
     Dates: start: 20190812, end: 20190812
  4. BERIPLEX P/N [Suspect]
     Active Substance: COAGULATION FACTOR IX HUMAN\COAGULATION FACTOR VII HUMAN\COAGULATION FACTOR X HUMAN\PROTEIN C\PROTEIN S HUMAN\PROTHROMBIN
     Indication: HAEMOSTASIS
     Dosage: 3000 INTERNATIONAL UNIT
     Route: 042
     Dates: start: 20191208, end: 20191208
  5. RIVAROXABAN [Concomitant]
     Active Substance: RIVAROXABAN
     Dosage: 15 MILLIGRAM, QD
     Route: 048
     Dates: start: 20190510, end: 20191008
  6. BERIPLEX P/N [Suspect]
     Active Substance: COAGULATION FACTOR IX HUMAN\COAGULATION FACTOR VII HUMAN\COAGULATION FACTOR X HUMAN\PROTEIN C\PROTEIN S HUMAN\PROTHROMBIN
     Indication: PROCOAGULANT THERAPY
     Dosage: 3000 INTERNATIONAL UNIT, SINGLE
     Route: 042
     Dates: start: 20191008, end: 20191008
  7. BERIPLEX P/N [Suspect]
     Active Substance: COAGULATION FACTOR IX HUMAN\COAGULATION FACTOR VII HUMAN\COAGULATION FACTOR X HUMAN\PROTEIN C\PROTEIN S HUMAN\PROTHROMBIN
     Indication: HAEMORRHAGE INTRACRANIAL
     Dosage: 3000 UNK
     Route: 042
     Dates: start: 20190812, end: 20190812
  8. LOSARTAN. [Concomitant]
     Active Substance: LOSARTAN
     Dosage: UNK
     Dates: end: 20191008

REACTIONS (11)
  - Disturbance in attention [Recovered/Resolved with Sequelae]
  - Motor dysfunction [Recovered/Resolved with Sequelae]
  - Dysarthria [Recovered/Resolved with Sequelae]
  - Mental impairment [Recovered/Resolved with Sequelae]
  - No adverse event [Unknown]
  - Delirium [Recovered/Resolved with Sequelae]
  - Haemorrhage intracranial [Recovered/Resolved with Sequelae]
  - Product use in unapproved indication [Unknown]
  - Neurologic neglect syndrome [Recovered/Resolved with Sequelae]
  - Hemiparesis [Recovered/Resolved with Sequelae]
  - Blood pressure increased [Recovered/Resolved with Sequelae]

NARRATIVE: CASE EVENT DATE: 20191008
